FAERS Safety Report 10227467 (Version 1)
Quarter: 2014Q2

REPORT INFORMATION
  Report Type: Spontaneous
  Country: US (occurrence: US)
  Receive Date: 20140610
  Receipt Date: 20140610
  Transmission Date: 20141212
  Serious: No
  Sender: FDA-Public Use
  Company Number: US-PFIZER INC-2014156630

PATIENT
  Age: 62 Year
  Sex: Female
  Weight: 79.37 kg

DRUGS (3)
  1. CORTISONE [Suspect]
     Indication: BURNING SENSATION
     Dosage: UNK, 2X/DAY
  2. CORTISONE [Suspect]
     Indication: PRURITUS
  3. NEXIUM [Concomitant]
     Indication: GASTROOESOPHAGEAL REFLUX DISEASE
     Dosage: UNK

REACTIONS (1)
  - Drug ineffective [Unknown]
